FAERS Safety Report 9941906 (Version 1)
Quarter: 2014Q1

REPORT INFORMATION
  Report Type: Report from Study
  Country: US (occurrence: US)
  Receive Date: 20140303
  Receipt Date: 20140303
  Transmission Date: 20141002
  Serious: No
  Sender: FDA-Public Use
  Company Number: US-ABBVIE-13P-163-1040330-00

PATIENT
  Age: 23 Year
  Sex: Male

DRUGS (3)
  1. HUMIRA [Suspect]
     Indication: CROHN^S DISEASE
  2. MULTIVITAMIN [Concomitant]
     Indication: PRODUCT USED FOR UNKNOWN INDICATION
  3. SUPPLEMENTS [Concomitant]
     Indication: PRODUCT USED FOR UNKNOWN INDICATION

REACTIONS (5)
  - Device malfunction [Not Recovered/Not Resolved]
  - Wrong technique in drug usage process [Not Recovered/Not Resolved]
  - Wrong technique in drug usage process [Not Recovered/Not Resolved]
  - Incorrect dose administered [Not Recovered/Not Resolved]
  - Drug ineffective [Not Recovered/Not Resolved]
